FAERS Safety Report 9637077 (Version 3)
Quarter: 2013Q4

REPORT INFORMATION
  Report Type: Spontaneous
  Country: IT (occurrence: IT)
  Receive Date: 20131022
  Receipt Date: 20131220
  Transmission Date: 20140711
  Serious: Yes (Hospitalization)
  Sender: FDA-Public Use
  Company Number: IT-BRISTOL-MYERS SQUIBB COMPANY-19533348

PATIENT
  Age: 71 Year
  Sex: Male

DRUGS (5)
  1. COUMADIN TABS 5 MG [Suspect]
     Indication: ATRIAL FIBRILLATION
     Route: 048
     Dates: start: 20130619, end: 20130829
  2. AMLODIPINE [Concomitant]
     Indication: HYPERTENSION
     Dosage: AMLODIPINE MALEATE AT 08:00 AM
     Route: 048
     Dates: start: 2010
  3. MICARDIS [Concomitant]
     Indication: HYPERTENSION
     Dosage: TABS
     Route: 048
     Dates: start: 2010
  4. PRADIF [Concomitant]
     Indication: BENIGN PROSTATIC HYPERPLASIA
     Dosage: TABS
     Route: 048
     Dates: start: 2011
  5. CORDARONE [Concomitant]
     Indication: ATRIAL FIBRILLATION
     Dosage: TABS
     Route: 048

REACTIONS (3)
  - Anaemia [Recovering/Resolving]
  - Duodenal ulcer [Unknown]
  - Gastrointestinal haemorrhage [Unknown]
